FAERS Safety Report 9477402 (Version 3)
Quarter: 2015Q2

REPORT INFORMATION
  Report Type: Report from Study
  Country: GB (occurrence: GB)
  Receive Date: 20130826
  Receipt Date: 20150618
  Transmission Date: 20150821
  Serious: Yes (Other)
  Sender: FDA-Public Use
  Company Number: GB-ROCHE-1262341

PATIENT
  Age: 63 Year
  Sex: Female
  Weight: 56.6 kg

DRUGS (14)
  1. OMEPRAZOLE. [Concomitant]
     Active Substance: OMEPRAZOLE
     Indication: GASTRITIS
  2. ELOCON CREAM [Concomitant]
     Indication: RASH
     Route: 065
     Dates: start: 20130719
  3. ZOMETA [Concomitant]
     Active Substance: ZOLEDRONIC ACID
     Indication: OSTEOPOROSIS POSTMENOPAUSAL
     Route: 065
     Dates: start: 20111109
  4. PERTUZUMAB [Suspect]
     Active Substance: PERTUZUMAB
     Dosage: MAINTENANCE DOSE, LAST DOSE 420 MG
     Route: 042
     Dates: end: 20130710
  5. HYDROCORTISONE. [Concomitant]
     Active Substance: HYDROCORTISONE
     Indication: PRURITUS
     Route: 065
     Dates: start: 20121211
  6. DEXAMETHASONE. [Concomitant]
     Active Substance: DEXAMETHASONE
     Indication: PREMEDICATION
     Route: 065
     Dates: start: 20130725
  7. OMEPRAZOLE. [Concomitant]
     Active Substance: OMEPRAZOLE
     Indication: COLITIS
     Route: 065
     Dates: start: 20110805
  8. LOTRIDERM CREAM [Concomitant]
     Indication: RASH
     Route: 065
     Dates: start: 201302
  9. PERTUZUMAB [Suspect]
     Active Substance: PERTUZUMAB
     Indication: HER-2 POSITIVE BREAST CANCER
     Dosage: LOADING DOSE
     Route: 042
     Dates: start: 20110727
  10. DEXAMETHASONE. [Concomitant]
     Active Substance: DEXAMETHASONE
     Indication: OEDEMA
     Route: 065
     Dates: start: 20130808
  11. DAKTARIN [Concomitant]
     Active Substance: MICONAZOLE NITRATE
     Indication: TINEA INFECTION
     Route: 065
     Dates: start: 20130325
  12. FLUCONAZOLE. [Concomitant]
     Active Substance: FLUCONAZOLE
     Indication: CUTANEOUS LARVA MIGRANS
     Route: 065
     Dates: start: 20130509
  13. PREDSOL EYE DROPS [Concomitant]
     Indication: VISION BLURRED
     Route: 065
     Dates: start: 20130507
  14. TRASTUZUMAB EMTANSINE [Suspect]
     Active Substance: ADO-TRASTUZUMAB EMTANSINE
     Indication: HER-2 POSITIVE BREAST CANCER
     Dosage: DATE OF LAST DOSE PRIOR TO SAE: 10/JUL/2013, LAST DOSE: 205 MG
     Route: 042
     Dates: start: 20110727

REACTIONS (1)
  - Cutaneous lupus erythematosus [Not Recovered/Not Resolved]

NARRATIVE: CASE EVENT DATE: 20130719
